FAERS Safety Report 26072172 (Version 1)
Quarter: 2025Q4

REPORT INFORMATION
  Report Type: Report from Study
  Country: US (occurrence: None)
  Receive Date: 20251120
  Receipt Date: 20251120
  Transmission Date: 20260118
  Serious: Yes (Other)
  Sender: UCB
  Company Number: US-UCBSA-2025072193

PATIENT
  Age: 10 Year
  Weight: 43.8 kg

DRUGS (1)
  1. FENFLURAMINE [Suspect]
     Active Substance: FENFLURAMINE
     Indication: Product used for unknown indication
     Dosage: 0.5 MG/KG/DAY TO A TOTAL OF 22 MG/DAY

REACTIONS (1)
  - Pulmonary valve incompetence [Unknown]
